FAERS Safety Report 18368393 (Version 11)
Quarter: 2021Q2

REPORT INFORMATION
  Report Type: Spontaneous
  Country: US (occurrence: US)
  Receive Date: 20201009
  Receipt Date: 20210525
  Transmission Date: 20210717
  Serious: Yes (Hospitalization)
  Sender: FDA-Public Use
  Company Number: US-SEATTLE GENETICS-2020SGN03875

PATIENT
  Sex: Female

DRUGS (9)
  1. TUKYSA [Suspect]
     Active Substance: TUCATINIB
     Dosage: 300 MG, BID
     Dates: start: 20201116
  2. HERCEPTIN [Concomitant]
     Active Substance: TRASTUZUMAB
     Dosage: UNK, Q3WEEKS
     Route: 042
  3. FLUTICASONE. [Suspect]
     Active Substance: FLUTICASONE
     Indication: HYPERSENSITIVITY
     Dosage: UNK
  4. PREDNISONE. [Suspect]
     Active Substance: PREDNISONE
  5. CAPECITABINE. [Concomitant]
     Active Substance: CAPECITABINE
     Dosage: 2000MG AM AND 1500MG PM FOR 14 DAYS ON, 7 DAYS OFF
  6. TUKYSA [Suspect]
     Active Substance: TUCATINIB
     Indication: BREAST CANCER FEMALE
     Dosage: UNK
     Route: 065
  7. TUKYSA [Suspect]
     Active Substance: TUCATINIB
     Dosage: UNK
     Route: 048
  8. BENADRYL [Suspect]
     Active Substance: DIPHENHYDRAMINE HYDROCHLORIDE
     Indication: PRODUCT USED FOR UNKNOWN INDICATION
  9. LAMISIL [Suspect]
     Active Substance: TERBINAFINE HYDROCHLORIDE
     Indication: PRODUCT USED FOR UNKNOWN INDICATION

REACTIONS (35)
  - Onychomycosis [Unknown]
  - Hypersensitivity [Unknown]
  - Clostridium difficile colitis [Unknown]
  - Gastrooesophageal reflux disease [Unknown]
  - Rhinorrhoea [Unknown]
  - Colonoscopy [Unknown]
  - Abdominal pain upper [Unknown]
  - Back pain [Unknown]
  - Atrial fibrillation [Unknown]
  - Blood pressure abnormal [Unknown]
  - Drug interaction [Unknown]
  - Blood phosphorus decreased [Unknown]
  - Diarrhoea [Unknown]
  - Pruritus [Unknown]
  - Gastrointestinal infection [Unknown]
  - Blood calcium decreased [Unknown]
  - Abnormal sensation in eye [Unknown]
  - Dry skin [Unknown]
  - Movement disorder [Unknown]
  - Arthritis [Unknown]
  - Muscle spasms [Unknown]
  - Alopecia [Unknown]
  - Headache [Unknown]
  - Diverticulitis [Unknown]
  - Unevaluable event [Unknown]
  - Muscle strain [Unknown]
  - Product dose omission issue [Unknown]
  - Pain [Unknown]
  - Memory impairment [Unknown]
  - Nightmare [Unknown]
  - Sneezing [Unknown]
  - Emergency care [Unknown]
  - Blood sodium decreased [Unknown]
  - Chest discomfort [Unknown]
  - Intentional product use issue [Unknown]
